FAERS Safety Report 5276462-7 (Version None)
Quarter: 2007Q1

REPORT INFORMATION
  Report Type: 
  Country: None (occurrence: None)
  Receive Date: 20061213
  Receipt Date: 20031124
  Transmission Date: 20070707
  Serious: No
  Sender: FDA-Public Use
  Company Number: 2003UW15587

PATIENT
  Age: 56 Year
  Sex: Female

DRUGS (5)
  1. SEROQUEL [Suspect]
     Dosage: 800 MG DAILY PO
     Route: 048
  2. SEROQUEL [Suspect]
     Dosage: 400 MG DAILY PO
     Route: 048
  3. WELLBUTRIN [Concomitant]
  4. ATIVAN [Concomitant]
  5. ABILIFY [Concomitant]

REACTIONS (1)
  - TARDIVE DYSKINESIA [None]
